FAERS Safety Report 11354266 (Version 1)
Quarter: 2015Q3

REPORT INFORMATION
  Report Type: Spontaneous
  Country: US (occurrence: US)
  Receive Date: 20150807
  Receipt Date: 20150807
  Transmission Date: 20151125
  Serious: No
  Sender: FDA-Public Use
  Company Number: US-JNJFOC-20140909073

PATIENT
  Age: 43 Year
  Sex: Male
  Weight: 90.72 kg

DRUGS (6)
  1. AMINO ACIDS [Concomitant]
     Active Substance: AMINO ACIDS
     Indication: ROUTINE HEALTH MAINTENANCE
     Dosage: 7 YEARS
     Route: 065
  2. MENS ROGAINE EXTRA STRENGTH [Suspect]
     Active Substance: MINOXIDIL
     Route: 061
  3. MENS ROGAINE EXTRA STRENGTH [Suspect]
     Active Substance: MINOXIDIL
     Indication: HAIR GROWTH ABNORMAL
     Dosage: 1/2 OF A CAP
     Route: 061
  4. MULTIVITAMINS [Concomitant]
     Active Substance: VITAMINS
     Indication: ROUTINE HEALTH MAINTENANCE
     Dosage: 7 YEARS
     Route: 065
  5. UNKNOWN MEDICATION [Concomitant]
     Active Substance: UNSPECIFIED INGREDIENT
     Indication: ROUTINE HEALTH MAINTENANCE
     Route: 065
  6. CREATINE [Concomitant]
     Active Substance: CREATINE
     Indication: ROUTINE HEALTH MAINTENANCE
     Dosage: 7 YEARS
     Route: 065

REACTIONS (2)
  - Dry skin [Not Recovered/Not Resolved]
  - Skin disorder [Not Recovered/Not Resolved]
